FAERS Safety Report 8979467 (Version 1)
Quarter: 2012Q4

REPORT INFORMATION
  Report Type: Report from Study
  Country: NL (occurrence: NL)
  Receive Date: 20121221
  Receipt Date: 20121221
  Transmission Date: 20130627
  Serious: Yes (Hospitalization)
  Sender: FDA-Public Use
  Company Number: NL-BAXTER-2012BAX027720

PATIENT
  Age: 57 Year
  Sex: Female
  Weight: 56 kg

DRUGS (12)
  1. ENDOXAN I.V., POEDER VOOR OPLOSSING VOOR INJECTIE 200, 500, 1000 MG [Suspect]
     Indication: DIFFUSE LARGE B-CELL LYMPHOMA
     Route: 042
     Dates: start: 20101020, end: 20101108
  2. ENDOXAN I.V., POEDER VOOR OPLOSSING VOOR INJECTIE 200, 500, 1000 MG [Suspect]
     Route: 042
     Dates: start: 20101108
  3. RITUXIMAB [Suspect]
     Indication: DIFFUSE LARGE B-CELL LYMPHOMA
     Route: 042
     Dates: start: 20101020, end: 20101110
  4. RITUXIMAB [Suspect]
     Route: 042
     Dates: start: 20101118
  5. PREDNISONE [Suspect]
     Indication: DIFFUSE LARGE B-CELL LYMPHOMA
     Route: 048
     Dates: start: 20101020, end: 20101107
  6. PREDNISONE [Suspect]
     Route: 048
     Dates: start: 20101118
  7. DOXORUBICIN [Suspect]
     Indication: DIFFUSE LARGE B-CELL LYMPHOMA
     Route: 042
     Dates: start: 20101020, end: 20101103
  8. DOXORUBICIN [Suspect]
     Route: 042
     Dates: start: 20101118
  9. VINCRISTINE [Suspect]
     Indication: DIFFUSE LARGE B-CELL LYMPHOMA
     Route: 042
     Dates: start: 20101020, end: 20101103
  10. VINCRISTINE [Suspect]
     Route: 042
     Dates: start: 20101118
  11. G-CSF [Suspect]
     Indication: DIFFUSE LARGE B-CELL LYMPHOMA
     Route: 058
     Dates: start: 20101021, end: 20101108
  12. G-CSF [Suspect]
     Route: 058
     Dates: start: 20101118

REACTIONS (3)
  - Pyrexia [Recovered/Resolved]
  - Injection site reaction [Recovered/Resolved]
  - Infection [Unknown]
